FAERS Safety Report 12239691 (Version 5)
Quarter: 2017Q2

REPORT INFORMATION
  Report Type: Spontaneous
  Country: US (occurrence: US)
  Receive Date: 20160405
  Receipt Date: 20170503
  Transmission Date: 20170830
  Serious: Yes (Other)
  Sender: FDA-Public Use
  Company Number: US-PFIZER INC-2016171861

PATIENT
  Age: 22 Year
  Sex: Female
  Weight: 57 kg

DRUGS (2)
  1. CHAPSTICK CLASSIC STRAWBERRY [Suspect]
     Active Substance: PETROLATUM
     Indication: CHAPPED LIPS
  2. CHAPSTICK CLASSIC STRAWBERRY [Suspect]
     Active Substance: PETROLATUM
     Indication: LIP DRY
     Dosage: UNK, AT NIGHT BEFORE BED AS NEEDED
     Route: 061
     Dates: start: 20160301, end: 20160302

REACTIONS (10)
  - Lip blister [Recovered/Resolved]
  - Lip infection [Recovered/Resolved]
  - Lip pain [Not Recovered/Not Resolved]
  - Malaise [Recovered/Resolved]
  - Condition aggravated [Recovered/Resolved]
  - Lip disorder [Not Recovered/Not Resolved]
  - Scar [Not Recovered/Not Resolved]
  - Lip pruritus [Recovered/Resolved with Sequelae]
  - Lip swelling [Recovered/Resolved]
  - Lip exfoliation [Not Recovered/Not Resolved]

NARRATIVE: CASE EVENT DATE: 201603
